FAERS Safety Report 7175772-6 (Version None)
Quarter: 2010Q4

REPORT INFORMATION
  Report Type: 
  Country: None (occurrence: None)
  Receive Date: 20101220
  Receipt Date: 20100402
  Transmission Date: 20110411
  Serious: No
  Sender: FDA-Public Use
  Company Number: US-AMGEN-TCS403615

PATIENT

DRUGS (1)
  1. ENBREL [Suspect]
     Indication: ANKYLOSING SPONDYLITIS
     Dosage: 25 MG, Q2WK
     Route: 058
     Dates: start: 20060530

REACTIONS (6)
  - HEADACHE [None]
  - HYPERSENSITIVITY [None]
  - SINUSITIS [None]
  - TOOTH FRACTURE [None]
  - TOOTH INFECTION [None]
  - VISUAL ACUITY REDUCED [None]
